FAERS Safety Report 6936072-X (Version None)
Quarter: 2010Q3

REPORT INFORMATION
  Report Type: 
  Country: None (occurrence: None)
  Receive Date: 20100819
  Receipt Date: 20100819
  Transmission Date: 20110219
  Serious: Yes (Hospitalization)
  Sender: FDA-Public Use
  Company Number: None

PATIENT
  Age: 57 Year
  Sex: Male
  Weight: 96 kg

DRUGS (2)
  1. LOVENOX [Suspect]
     Indication: ANTICOAGULANT THERAPY
     Dosage: 100MG EVERY 12 HOURS SQ
     Route: 058
     Dates: start: 20100716, end: 20100722
  2. LOVENOX [Suspect]
     Indication: ATRIAL FIBRILLATION
     Dosage: 100MG EVERY 12 HOURS SQ
     Route: 058
     Dates: start: 20100716, end: 20100722

REACTIONS (4)
  - ABDOMINAL PAIN LOWER [None]
  - GROIN PAIN [None]
  - HAEMATOMA [None]
  - RETROPERITONEAL HAEMORRHAGE [None]
